FAERS Safety Report 17465680 (Version 1)
Quarter: 2020Q1

REPORT INFORMATION
  Report Type: Spontaneous
  Country: US (occurrence: US)
  Receive Date: 20200227
  Receipt Date: 20200227
  Transmission Date: 20200409
  Serious: No
  Sender: FDA-Public Use
  Company Number: US-TAKEDA-2020TUS011705

PATIENT
  Sex: Male

DRUGS (1)
  1. NINLARO [Suspect]
     Active Substance: IXAZOMIB CITRATE
     Dosage: 2.3 MILLIGRAM
     Route: 048
     Dates: start: 20190608

REACTIONS (7)
  - Dyspepsia [Unknown]
  - Gait disturbance [Unknown]
  - Abdominal pain upper [Unknown]
  - Off label use [Unknown]
  - Headache [Unknown]
  - Visual impairment [Unknown]
  - Nausea [Unknown]
